FAERS Safety Report 4775496-6 (Version None)
Quarter: 2005Q3

REPORT INFORMATION
  Report Type: 
  Country: None (occurrence: None)
  Receive Date: 20050920
  Receipt Date: 20050908
  Transmission Date: 20060218
  Serious: Yes (Other)
  Sender: FDA-Public Use
  Company Number: 2005126276

PATIENT
  Sex: Female
  Weight: 28.123 kg

DRUGS (7)
  1. XANAX [Suspect]
     Indication: NERVOUSNESS
     Dosage: 0.5 MG (0.5 MG, 2 IN 1 D), ORAL
     Route: 048
     Dates: start: 19880101
  2. ANTIVERT [Suspect]
     Indication: DIZZINESS
     Dosage: (3 IN 1 D), ORAL
     Route: 048
  3. LIPITOR [Suspect]
     Indication: BLOOD CHOLESTEROL INCREASED
     Dosage: 10 MCG (10 MG, 1 IN 1 D), ORAL
     Route: 048
     Dates: start: 20020101
  4. ZOLOFT [Suspect]
     Indication: DEPRESSION
     Dosage: 50 MG (50 MG, 1 IN 1 D), ORAL
     Route: 048
     Dates: start: 19890101
  5. PREDNISONE [Suspect]
     Indication: SWELLING FACE
     Dates: start: 20050601
  6. PROTONIX [Concomitant]
  7. POTASSIUM (POTASSIUM) [Concomitant]

REACTIONS (9)
  - BLOOD CHOLESTEROL INCREASED [None]
  - DEPRESSION [None]
  - ECONOMIC PROBLEM [None]
  - EYE SWELLING [None]
  - PLASTIC SURGERY TO THE FACE [None]
  - SINUS DISORDER [None]
  - SINUSITIS [None]
  - SWELLING FACE [None]
  - WEIGHT INCREASED [None]
